FAERS Safety Report 8221067-9 (Version None)
Quarter: 2012Q1

REPORT INFORMATION
  Report Type: 
  Country: None (occurrence: None)
  Receive Date: 20120320
  Receipt Date: 20120307
  Transmission Date: 20120608
  Serious: Yes (Other)
  Sender: FDA-Public Use
  Company Number: US-ELI_LILLY_AND_COMPANY-US201203003650

PATIENT
  Age: 47 Year
  Sex: Male

DRUGS (3)
  1. HEPARIN [Concomitant]
     Dosage: UNK, UNKNOWN
  2. INTEGRILIN [Concomitant]
     Dosage: UNK, UNKNOWN
  3. EFFIENT [Suspect]
     Indication: ACUTE MYOCARDIAL INFARCTION
     Dosage: 10 MG, QD

REACTIONS (2)
  - FEMORAL ARTERY DISSECTION [None]
  - RETROPERITONEAL HAEMORRHAGE [None]
